FAERS Safety Report 12373533 (Version 1)
Quarter: 2016Q2

REPORT INFORMATION
  Report Type: Spontaneous
  Country: GB (occurrence: GB)
  Receive Date: 20160516
  Receipt Date: 20160516
  Transmission Date: 20160815
  Serious: Yes (Hospitalization, Other)
  Sender: FDA-Public Use
  Company Number: PHFR2016GB001355

PATIENT
  Age: 65 Year
  Sex: Female
  Weight: 75.2 kg

DRUGS (6)
  1. BLEPHASOL [Concomitant]
     Indication: BLEPHARITIS
     Dosage: APPLY AS DIRECTED
     Route: 065
  2. GLIVEC [Suspect]
     Active Substance: IMATINIB MESYLATE
     Dosage: 200 MG, QD
     Route: 048
  3. SIMVASTATIN. [Concomitant]
     Active Substance: SIMVASTATIN
     Indication: LIPIDS DECREASED
     Dosage: 40 MG, QD
     Route: 048
  4. LEVOTHYROXINE. [Concomitant]
     Active Substance: LEVOTHYROXINE
     Indication: HYPOTHYROIDISM
     Dosage: 125 UG, QD
     Route: 048
     Dates: start: 2011
  5. ALLOPURINOL. [Concomitant]
     Active Substance: ALLOPURINOL
     Indication: BLOOD URIC ACID INCREASED
     Dosage: 300 MG, QD
     Route: 048
     Dates: start: 20150922, end: 20151013
  6. GLIVEC [Suspect]
     Active Substance: IMATINIB MESYLATE
     Indication: CHRONIC MYELOID LEUKAEMIA
     Dosage: 400 MG, QD
     Route: 048
     Dates: start: 20150929, end: 20151013

REACTIONS (25)
  - Vomiting [Unknown]
  - Oedema peripheral [Unknown]
  - Dyspnoea [Unknown]
  - Heart rate increased [Unknown]
  - Splenomegaly [Unknown]
  - Nausea [Recovered/Resolved]
  - Skin exfoliation [Recovered/Resolved]
  - Malaise [Unknown]
  - Jaundice [Unknown]
  - Hordeolum [Unknown]
  - Rash [Recovering/Resolving]
  - Cardiotoxicity [Unknown]
  - Anaemia [Unknown]
  - Crepitations [Unknown]
  - Flushing [Unknown]
  - Fatigue [Recovering/Resolving]
  - Swelling face [Recovered/Resolved]
  - Wheezing [Unknown]
  - Hepatosplenomegaly [Unknown]
  - Hepatomegaly [Unknown]
  - Pyrexia [Unknown]
  - Liver function test abnormal [Recovered/Resolved]
  - Pruritus [Recovering/Resolving]
  - Blood pressure systolic increased [Unknown]
  - Hepatitis [Recovered/Resolved]

NARRATIVE: CASE EVENT DATE: 201510
